FAERS Safety Report 8591407-X (Version None)
Quarter: 2012Q3

REPORT INFORMATION
  Report Type: 
  Country: None (occurrence: None)
  Receive Date: 20120803
  Receipt Date: 20120803
  Transmission Date: 20120928
  Serious: Yes (Other)
  Sender: FDA-Public Use
  Company Number: None

PATIENT
  Age: 55 Year
  Sex: Female

DRUGS (2)
  1. THALIDOMIDE [Suspect]
  2. VELCADE [Suspect]

REACTIONS (5)
  - THROMBOSIS [None]
  - FATIGUE [None]
  - WEIGHT INCREASED [None]
  - NEUROPATHY PERIPHERAL [None]
  - HYPERTENSION [None]
